FAERS Safety Report 17851742 (Version 5)
Quarter: 2022Q1

REPORT INFORMATION
  Report Type: Spontaneous
  Country: ES (occurrence: ES)
  Receive Date: 20200602
  Receipt Date: 20220202
  Transmission Date: 20220424
  Serious: Yes (Death, Hospitalization, Other)
  Sender: FDA-Public Use
  Company Number: ES-GRUNENTHAL-2020-103017

PATIENT
  Age: 95 Year
  Sex: Female

DRUGS (13)
  1. SPIRONOLACTONE [Suspect]
     Active Substance: SPIRONOLACTONE
     Dosage: 100 MG, 1X/DAY
  2. AMLODIPINE BESYLATE [Suspect]
     Active Substance: AMLODIPINE BESYLATE
     Dosage: 10 MG, 1X/DAY
  3. SERTRALINE HYDROCHLORIDE [Interacting]
     Active Substance: SERTRALINE HYDROCHLORIDE
     Dosage: 50 MG, 1X/DAY
  4. LORAZEPAM [Suspect]
     Active Substance: LORAZEPAM
     Dosage: 2 MG, 1X/DAY
  5. RISPERIDONE [Suspect]
     Active Substance: RISPERIDONE
     Dosage: 2 MG, 1X/DAY
  6. RISPERIDONE [Suspect]
     Active Substance: RISPERIDONE
     Dosage: 4 MG, 1X/DAY
  7. FUROSEMIDE [Suspect]
     Active Substance: FUROSEMIDE
     Dosage: 80 MG, 1X/DAY
  8. LOSARTAN [Suspect]
     Active Substance: LOSARTAN
     Dosage: 100 MG, 1X/DAY
  9. SIMVASTATIN [Suspect]
     Active Substance: SIMVASTATIN
     Dosage: 10 MG, 1X/DAY
  10. ZALDIAR [Interacting]
     Active Substance: ACETAMINOPHEN\TRAMADOL HYDROCHLORIDE
     Dosage: 1 DF, 2X/DAY (EVERY 12 HOURS) WITH BREAKFAST AND DINNER
     Route: 065
  11. ACENOCOUMAROL [Suspect]
     Active Substance: ACENOCOUMAROL
     Dosage: 9 MG, WEEKLY
  12. QUETIAPINE [Suspect]
     Active Substance: QUETIAPINE
     Dosage: 50 MG, 1X/DAY
  13. OMEPRAZOLE [Suspect]
     Active Substance: OMEPRAZOLE
     Dosage: 20 MG, 1X/DAY

REACTIONS (15)
  - Serotonin syndrome [Fatal]
  - Cardio-respiratory arrest [Fatal]
  - Blood pressure increased [Unknown]
  - Neurological decompensation [Unknown]
  - Confusional state [Unknown]
  - Disorganised speech [Unknown]
  - Dysphagia [Unknown]
  - Drug interaction [Unknown]
  - Delirium [Recovering/Resolving]
  - Diarrhoea [Unknown]
  - Gastrointestinal sounds abnormal [Unknown]
  - Hypertonia [Unknown]
  - Hyperreflexia [Unknown]
  - Myoclonus [Recovering/Resolving]
  - Pyrexia [Recovering/Resolving]
